FAERS Safety Report 14929044 (Version 2)
Quarter: 2018Q2

REPORT INFORMATION
  Report Type: Spontaneous
  Country: US (occurrence: US)
  Receive Date: 20180523
  Receipt Date: 20180606
  Transmission Date: 20180711
  Serious: Yes (Life-Threatening, Other)
  Sender: FDA-Public Use
  Company Number: US-009507513-1805USA008800

PATIENT
  Age: 63 Year
  Sex: Male

DRUGS (2)
  1. CUBICIN [Suspect]
     Active Substance: DAPTOMYCIN
     Indication: PATHOGEN RESISTANCE
     Dosage: 500 MG, DAILY
     Route: 042
  2. MEROPENEM. [Suspect]
     Active Substance: MEROPENEM
     Indication: PATHOGEN RESISTANCE
     Dosage: 500 MG, EVERY 6 HOURS

REACTIONS (1)
  - Rhabdomyolysis [Unknown]
